FAERS Safety Report 6876779-6 (Version None)
Quarter: 2010Q3

REPORT INFORMATION
  Report Type: 
  Country: None (occurrence: None)
  Receive Date: 20100727
  Receipt Date: 20100714
  Transmission Date: 20110219
  Serious: Yes (Hospitalization, Disabling, Other)
  Sender: FDA-Public Use
  Company Number: PHHY2010US46899

PATIENT
  Age: 44 Year
  Sex: Female

DRUGS (3)
  1. NEORAL [Suspect]
     Indication: RENAL TRANSPLANT
     Dosage: 125 MG/DAY
     Route: 048
     Dates: start: 19980707
  2. NEORAL [Suspect]
     Dosage: 150 MG/DAY
  3. RAPAMUNE [Suspect]
     Indication: PROPHYLAXIS AGAINST TRANSPLANT REJECTION
     Dosage: 2 MG/DAY
     Route: 048
     Dates: start: 19980721, end: 19980721

REACTIONS (16)
  - DIARRHOEA [None]
  - DYSGEUSIA [None]
  - FEELING ABNORMAL [None]
  - HAIR GROWTH ABNORMAL [None]
  - HERNIA [None]
  - HIRSUTISM [None]
  - HYPOAESTHESIA [None]
  - HYPOAESTHESIA ORAL [None]
  - IMPAIRED HEALING [None]
  - INCISIONAL HERNIA REPAIR [None]
  - MIGRAINE [None]
  - MOVEMENT DISORDER [None]
  - PAIN [None]
  - PARAESTHESIA [None]
  - PARAESTHESIA ORAL [None]
  - WEIGHT DECREASED [None]
